FAERS Safety Report 5064266-X (Version None)
Quarter: 2006Q3

REPORT INFORMATION
  Report Type: 
  Country: None (occurrence: None)
  Receive Date: 20060728
  Receipt Date: 20060518
  Transmission Date: 20061208
  Serious: Yes (Life-Threatening, Hospitalization, Other)
  Sender: FDA-Public Use
  Company Number: DEWYE634218MAY06

PATIENT
  Sex: Female
  Weight: 56 kg

DRUGS (1)
  1. ENBREL [Suspect]
     Indication: POLYARTHRITIS
     Route: 058
     Dates: start: 20000101

REACTIONS (6)
  - ARTHRITIS INFECTIVE [None]
  - ASCITES [None]
  - ENCEPHALITIS [None]
  - LISTERIA SEPSIS [None]
  - LISTERIOSIS [None]
  - PLEURAL EFFUSION [None]
